FAERS Safety Report 18010179 (Version 2)
Quarter: 2020Q3

REPORT INFORMATION
  Report Type: Spontaneous
  Country: GB (occurrence: GB)
  Receive Date: 20200710
  Receipt Date: 20200722
  Transmission Date: 20201103
  Serious: Yes (Other)
  Sender: FDA-Public Use
  Company Number: GB-PFIZER INC-2020256977

PATIENT
  Age: 35 Year
  Sex: Female
  Weight: 77.4 kg

DRUGS (1)
  1. SAYANA PRESS [Suspect]
     Active Substance: MEDROXYPROGESTERONE\MEDROXYPROGESTERONE ACETATE
     Indication: CONTRACEPTION
     Dosage: UNK
     Route: 030
     Dates: start: 20160925

REACTIONS (3)
  - Skin indentation [Not Recovered/Not Resolved]
  - Incorrect route of product administration [Unknown]
  - Skin injury [Not Recovered/Not Resolved]

NARRATIVE: CASE EVENT DATE: 20160925
